FAERS Safety Report 5466290-1 (Version None)
Quarter: 2007Q3

REPORT INFORMATION
  Report Type: 
  Country: None (occurrence: None)
  Receive Date: 20070919
  Receipt Date: 20070903
  Transmission Date: 20080115
  Serious: Yes (Other)
  Sender: FDA-Public Use
  Company Number: GXKR2007ES07721

PATIENT
  Age: 40 Year
  Sex: Male
  Weight: 67 kg

DRUGS (2)
  1. AMOXICILLIN AND CLAVULANATE POTASSIUM [Suspect]
     Indication: ACUTE TONSILLITIS
     Dosage: 875/125MG = 1 DF, TID, ORAL
     Route: 048
     Dates: start: 20070617, end: 20070617
  2. RANITIDINE [Concomitant]

REACTIONS (2)
  - RASH [None]
  - SYNCOPE [None]
